FAERS Safety Report 12942215 (Version 3)
Quarter: 2017Q1

REPORT INFORMATION
  Report Type: Report from Study
  Country: AU (occurrence: AU)
  Receive Date: 20161114
  Receipt Date: 20170104
  Transmission Date: 20170428
  Serious: Yes (Death, Hospitalization, Other)
  Sender: FDA-Public Use
  Company Number: AU-ASTRAZENECA-2016SF13829

PATIENT
  Age: 638 Month
  Sex: Female
  Weight: 65 kg

DRUGS (15)
  1. LYNPARZA [Suspect]
     Active Substance: OLAPARIB
     Indication: OVARIAN CANCER
     Route: 048
     Dates: start: 201507, end: 201609
  2. PREVIOUS CHEMOTHERAPY WITH CARBOPLATIN [Suspect]
     Active Substance: CARBOPLATIN
     Indication: OVARIAN CANCER
     Route: 065
  3. PREVIOUS CHEMOTHERAPY WITH CYCLOPHOSPHAMIDE AND METHOTREXATE AND FL... [Suspect]
     Active Substance: CYCLOPHOSPHAMIDE\FLUOROURACIL\METHOTREXATE
     Indication: BREAST CANCER
     Route: 065
  4. AC/CMF [Suspect]
     Active Substance: CYCLOPHOSPHAMIDE\FLUOROURACIL\METHOTREXATE
     Indication: OVARIAN CANCER
     Route: 065
  5. PREVIOUS CHEMOTHERAPY WITH DOXORUBICIN AND CYCLOPHOSPHAMID [Suspect]
     Active Substance: CYCLOPHOSPHAMIDE\DOXORUBICIN
     Indication: BREAST CANCER
     Route: 065
  6. CONCOMITANT CHEMOTHERAPY WITH CARBOPLATIN AND PACLITAXEL [Suspect]
     Active Substance: CARBOPLATIN\PACLITAXEL
     Indication: OVARIAN CANCER
     Route: 065
  7. AC/CMF [Suspect]
     Active Substance: CYCLOPHOSPHAMIDE\FLUOROURACIL\METHOTREXATE
     Indication: OVARIAN CANCER
     Route: 065
  8. PREVIOUS CHEMOTHERAPY WITH DOXORUBICIN AND CYCLOPHOSPHAMID [Suspect]
     Active Substance: CYCLOPHOSPHAMIDE\DOXORUBICIN
     Indication: BREAST CANCER
     Route: 065
  9. PREVIOUS CHEMOTHERAPY WITH CARBOPLATIN AND PACLITAXEL [Suspect]
     Active Substance: CARBOPLATIN\PACLITAXEL
     Indication: OVARIAN CANCER
     Route: 065
  10. PREVIOUS CHEMOTHERAPY WITH CYCLOPHOSPHAMIDE AND METHOTREXATE AND FL.. . [Suspect]
     Active Substance: CYCLOPHOSPHAMIDE\FLUOROURACIL\METHOTREXATE
     Indication: BREAST CANCER
     Route: 065
  11. CONCOMITANT CHEMOTHERAPY WITH CARBOPLATIN AND PACLITAXEL [Suspect]
     Active Substance: CARBOPLATIN\PACLITAXEL
     Indication: OVARIAN CANCER
     Route: 065
  12. AC/CMF [Suspect]
     Active Substance: CYCLOPHOSPHAMIDE\FLUOROURACIL\METHOTREXATE
     Indication: OVARIAN CANCER
     Route: 065
  13. PREVIOUS CHEMOTHERAPY WITH CARBOPLATIN AND PACLITAXEL [Suspect]
     Active Substance: CARBOPLATIN\PACLITAXEL
     Indication: OVARIAN CANCER
     Route: 065
  14. PREVIOUS CHEMOTHERAPY WITH LIPOSOMAL DOXORUBICIN [Suspect]
     Active Substance: DOXORUBICIN
     Indication: OVARIAN CANCER
     Route: 065
  15. PREVIOUS CHEMOTHERAPY WITH CYCLOPHOSPHAMIDE AND METHOTREXATE AND FL.. . [Suspect]
     Active Substance: CYCLOPHOSPHAMIDE\FLUOROURACIL\METHOTREXATE
     Indication: BREAST CANCER
     Route: 065

REACTIONS (3)
  - Pyrexia [Unknown]
  - Respiratory distress [Fatal]
  - Acute myeloid leukaemia [Fatal]

NARRATIVE: CASE EVENT DATE: 201609
